FAERS Safety Report 25310993 (Version 1)
Quarter: 2025Q2

REPORT INFORMATION
  Report Type: Spontaneous
  Country: US (occurrence: None)
  Receive Date: 20250514
  Receipt Date: 20250514
  Transmission Date: 20250716
  Serious: No
  Sender: ENCUBE ETHICALS
  Company Number: US-Encube-001779

PATIENT
  Age: 76 Year
  Sex: Male

DRUGS (1)
  1. DICLOFENAC SODIUM [Suspect]
     Active Substance: DICLOFENAC SODIUM
     Indication: Pain in extremity
     Dosage: USED THE MEDICATION FOR 15 OR 20 DAYS
     Dates: start: 20250402, end: 202504

REACTIONS (2)
  - Pain [Not Recovered/Not Resolved]
  - Product use in unapproved indication [Unknown]

NARRATIVE: CASE EVENT DATE: 20250401
